FAERS Safety Report 5789401-7 (Version None)
Quarter: 2008Q2

REPORT INFORMATION
  Report Type: 
  Country: None (occurrence: None)
  Receive Date: 20080626
  Receipt Date: 20080624
  Transmission Date: 20081010
  Serious: Yes (Other)
  Sender: FDA-Public Use
  Company Number: US-BAYER-US-2007-011613

PATIENT

DRUGS (3)
  1. MAGNEVIST [Suspect]
     Indication: DRUG USE FOR UNKNOWN INDICATION
     Dosage: UNIT DOSE: 12 ML
     Dates: start: 20010901, end: 20010901
  2. OMNISCAN [Suspect]
     Indication: DRUG USE FOR UNKNOWN INDICATION
     Dosage: UNIT DOSE: 31 ML
     Dates: start: 20021201, end: 20021201
  3. OMNISCAN [Suspect]
     Dates: start: 20021216, end: 20021216

REACTIONS (1)
  - NEPHROGENIC SYSTEMIC FIBROSIS [None]
